FAERS Safety Report 15776204 (Version 1)
Quarter: 2018Q4

REPORT INFORMATION
  Report Type: Spontaneous
  Country: US (occurrence: US)
  Receive Date: 20181231
  Receipt Date: 20181231
  Transmission Date: 20190205
  Serious: No
  Sender: FDA-Public Use
  Company Number: US-DRREDDYS-USA/USA/18/0106250

PATIENT
  Age: 32 Year
  Sex: Male

DRUGS (1)
  1. SIROLIMUS. [Suspect]
     Active Substance: SIROLIMUS
     Indication: ARTERIOVENOUS MALFORMATION
     Route: 065

REACTIONS (1)
  - Oral mucosa erosion [Recovered/Resolved]
